FAERS Safety Report 5951807-0 (Version None)
Quarter: 2008Q4

REPORT INFORMATION
  Report Type: 
  Country: None (occurrence: None)
  Receive Date: 20081113
  Receipt Date: 20081110
  Transmission Date: 20090506
  Serious: Yes (Other)
  Sender: FDA-Public Use
  Company Number: A0755595A

PATIENT
  Age: 64 Year
  Sex: Female

DRUGS (4)
  1. LOVAZA [Suspect]
     Dosage: 2CAP TWICE PER DAY
     Route: 048
     Dates: start: 20070601
  2. LIPITOR [Concomitant]
  3. FOSAMAX [Concomitant]
  4. PREMARIN [Concomitant]

REACTIONS (1)
  - CATARACT [None]
